FAERS Safety Report 13887056 (Version 1)
Quarter: 2017Q3

REPORT INFORMATION
  Report Type: Spontaneous
  Country: PT (occurrence: PT)
  Receive Date: 20170821
  Receipt Date: 20170821
  Transmission Date: 20171127
  Serious: Yes (Hospitalization, Other)
  Sender: FDA-Public Use
  Company Number: PT-BAYER-2017-152542

PATIENT
  Age: 21 Year
  Sex: Female

DRUGS (1)
  1. ACETYLSALICYLIC ACID (} 100 MG, FAST RELEASE) [Suspect]
     Active Substance: ASPIRIN
     Indication: MIGRAINE WITHOUT AURA
     Dosage: 1 DF, UNK
     Route: 048
     Dates: start: 20150914

REACTIONS (2)
  - Maternal exposure during pregnancy [None]
  - Cerebral venous thrombosis [None]

NARRATIVE: CASE EVENT DATE: 20151007
